FAERS Safety Report 14472535 (Version 2)
Quarter: 2018Q1

REPORT INFORMATION
  Report Type: Spontaneous
  Country: DK (occurrence: DK)
  Receive Date: 20180201
  Receipt Date: 20180306
  Transmission Date: 20180509
  Serious: Yes (Other)
  Sender: FDA-Public Use
  Company Number: PHHY2017DK200016

PATIENT
  Sex: Female

DRUGS (8)
  1. CALCIUM FOLINATE [Concomitant]
     Active Substance: LEUCOVORIN CALCIUM
     Indication: PRODUCT USED FOR UNKNOWN INDICATION
  2. ETOPOSIDE. [Suspect]
     Active Substance: ETOPOSIDE
     Indication: GESTATIONAL TROPHOBLASTIC TUMOUR
     Dosage: 100 MG/M2, QD (DAY 1-5, EVERY 3 WEEKS)
     Route: 042
  3. CALCIUM FOLINATE [Concomitant]
     Active Substance: LEUCOVORIN CALCIUM
     Dosage: 1 ML, UNK
     Route: 048
  4. CISPLATIN. [Suspect]
     Active Substance: CISPLATIN
     Indication: GESTATIONAL TROPHOBLASTIC TUMOUR
     Dosage: 20 MG/M2, QD (DAY 1-5, EVERY 3 WEEKS)
     Route: 042
  5. CALCIUM FOLINATE [Concomitant]
     Active Substance: LEUCOVORIN CALCIUM
     Indication: DRUG TOXICITY PROPHYLAXIS
  6. BLEOMYCIN [Suspect]
     Active Substance: BLEOMYCIN SULFATE
     Indication: GESTATIONAL TROPHOBLASTIC TUMOUR
     Dosage: 30000 IU, QW (ON DAY 2,9,16)
     Route: 042
  7. DACTINOMYCIN [Concomitant]
     Active Substance: DACTINOMYCIN
     Indication: PRODUCT USED FOR UNKNOWN INDICATION
     Dosage: 0.5 MG, UNK (SCHEDULE REPEATED EVERY 4 WEEKS (ALTERNATIVELY EVERY3 WEEKS))
     Route: 042
  8. METHOTREXATE. [Suspect]
     Active Substance: METHOTREXATE
     Indication: GESTATIONAL TROPHOBLASTIC TUMOUR
     Dosage: 10 MG, QD (REPEATED EVERY 4 WEEKS (ALTERNATIVELY EVERY3 WEEKS))
     Route: 048

REACTIONS (4)
  - Drug resistance [Unknown]
  - Anaemia [Unknown]
  - Respiratory symptom [Unknown]
  - Product use in unapproved indication [Unknown]
